FAERS Safety Report 21177069 (Version 1)
Quarter: 2022Q3

REPORT INFORMATION
  Report Type: Spontaneous
  Country: US (occurrence: None)
  Receive Date: 20220804
  Receipt Date: 20220804
  Transmission Date: 20221027
  Serious: Yes (Other)
  Sender: FDA-Public Use
  Company Number: None

PATIENT
  Age: 79 Year
  Sex: Male

DRUGS (5)
  1. LOSARTAN [Suspect]
     Active Substance: LOSARTAN
     Dosage: FREQUENCY : DAILY;?
     Route: 048
     Dates: start: 20220722
  2. PRAVASTATIN [Suspect]
     Active Substance: PRAVASTATIN
     Dosage: FREQUENCY : DAILY;?
     Route: 048
     Dates: start: 20220722
  3. EZETIMIBE    TAB 10MG [Concomitant]
  4. ALLOPURINOL TAB 300MG [Concomitant]
  5. LEVOTHYROXINE TAB 125MCG [Concomitant]

REACTIONS (2)
  - Chest pain [None]
  - Dyspnoea [None]

NARRATIVE: CASE EVENT DATE: 20220804
